FAERS Safety Report 25214244 (Version 2)
Quarter: 2025Q2

REPORT INFORMATION
  Report Type: Spontaneous
  Country: US (occurrence: US)
  Receive Date: 20250418
  Receipt Date: 20250424
  Transmission Date: 20250716
  Serious: Yes (Other)
  Sender: PFIZER
  Company Number: US-PFIZER INC-202400205670

PATIENT
  Age: 53 Year
  Sex: Female

DRUGS (2)
  1. XELJANZ XR [Suspect]
     Active Substance: TOFACITINIB CITRATE
     Indication: Crepitations
  2. XELJANZ XR [Suspect]
     Active Substance: TOFACITINIB CITRATE
     Indication: Haemorrhage

REACTIONS (5)
  - Diabetes mellitus [Unknown]
  - Liver disorder [Unknown]
  - Renal disorder [Unknown]
  - Cardiac disorder [Unknown]
  - Visual impairment [Not Recovered/Not Resolved]
